FAERS Safety Report 9179008 (Version 1)
Quarter: 2012Q4

REPORT INFORMATION
  Report Type: 
  Country: FR (occurrence: FR)
  Receive Date: 20121029
  Receipt Date: 20121029
  Transmission Date: 20130627
  Serious: Yes (Death, Other)
  Sender: FDA-Public Use
  Company Number: FR-JNJFOC-20121013822

PATIENT
  Age: 15 Year
  Sex: Male

DRUGS (14)
  1. DOXORUBICIN [Suspect]
     Indication: BURKITT^S LYMPHOMA STAGE IV
     Dosage: COPADM regimen two cycles
     Route: 042
  2. CYCLOPHOSPHAMIDE [Suspect]
     Indication: BURKITT^S LYMPHOMA STAGE IV
     Dosage: COP regimen
     Route: 065
  3. CYCLOPHOSPHAMIDE [Suspect]
     Indication: BURKITT^S LYMPHOMA STAGE IV
     Dosage: COPADM regimen two cycles
     Route: 065
  4. VINCRISTINE [Suspect]
     Indication: BURKITT^S LYMPHOMA STAGE IV
     Dosage: COPADM regimen two cycles
     Route: 065
  5. VINCRISTINE [Suspect]
     Indication: BURKITT^S LYMPHOMA STAGE IV
     Dosage: COP regimen
     Route: 065
  6. PREDNISONE [Suspect]
     Indication: BURKITT^S LYMPHOMA STAGE IV
     Dosage: COPADM regimen two cycles
     Route: 065
  7. PREDNISONE [Suspect]
     Indication: BURKITT^S LYMPHOMA STAGE IV
     Dosage: COP regimen
     Route: 065
  8. METHOTREXATE [Suspect]
     Indication: BURKITT^S LYMPHOMA STAGE IV
     Dosage: CYM regimen 2 cycles
     Route: 065
  9. METHOTREXATE [Suspect]
     Indication: BURKITT^S LYMPHOMA STAGE IV
     Dosage: COPADM regimen two cycles
     Route: 065
  10. CYTARABINE [Suspect]
     Indication: BURKITT^S LYMPHOMA STAGE IV
     Dosage: CYVE regimen 1 cycle, high dose
     Route: 065
  11. ETOPOSIDE [Suspect]
     Indication: BURKITT^S LYMPHOMA STAGE IV
     Dosage: CYVE regimen 1 cycle
     Route: 065
  12. NUCLEOSIDE REVERSE TRANSCRIPTASE INHIBITOR S [Suspect]
     Indication: ACQUIRED IMMUNODEFICIENCY SYNDROME
     Route: 065
  13. PROTEASE INHIBITORS [Suspect]
     Indication: ACQUIRED IMMUNODEFICIENCY SYNDROME
     Route: 065
  14. NON-NUCLEOSIDE REVERSE TRANSCRIPTASE INHIBITORS [Suspect]
     Indication: ACQUIRED IMMUNODEFICIENCY SYNDROME
     Route: 065

REACTIONS (3)
  - Neoplasm malignant [Fatal]
  - Neutropenia [Unknown]
  - Cystitis haemorrhagic [Unknown]
